FAERS Safety Report 22643131 (Version 1)
Quarter: 2023Q2

REPORT INFORMATION
  Report Type: Spontaneous
  Country: GB (occurrence: GB)
  Receive Date: 20230627
  Receipt Date: 20230627
  Transmission Date: 20230721
  Serious: Yes (Disabling, Other)
  Sender: FDA-Public Use
  Company Number: GB-MHRA-MED-202306122148255810-FCMYR

PATIENT

DRUGS (2)
  1. FINASTERIDE [Suspect]
     Active Substance: FINASTERIDE
     Indication: Alopecia
     Dosage: 1 MG DAILY, THEN 0.5 MG EVERY OTHER DAY
     Route: 065
     Dates: start: 20230323, end: 20230408
  2. ROGAINE [Concomitant]
     Active Substance: MINOXIDIL
     Indication: Alopecia
     Dosage: UNK
     Route: 065
     Dates: start: 20230323, end: 20230408

REACTIONS (14)
  - Panic attack [Recovered/Resolved with Sequelae]
  - Hypertension [Not Recovered/Not Resolved]
  - Vertigo [Recovering/Resolving]
  - Nausea [Not Recovered/Not Resolved]
  - Asthenia [Not Recovered/Not Resolved]
  - Chest pain [Recovered/Resolved with Sequelae]
  - Dizziness [Not Recovered/Not Resolved]
  - Dyspnoea [Recovered/Resolved with Sequelae]
  - Memory impairment [Not Recovered/Not Resolved]
  - Insomnia [Not Recovered/Not Resolved]
  - Anxiety [Not Recovered/Not Resolved]
  - Palpitations [Recovered/Resolved with Sequelae]
  - Erectile dysfunction [Recovered/Resolved]
  - Depression [Not Recovered/Not Resolved]

NARRATIVE: CASE EVENT DATE: 20230325
